FAERS Safety Report 17367768 (Version 1)
Quarter: 2020Q1

REPORT INFORMATION
  Report Type: Spontaneous
  Country: US (occurrence: US)
  Receive Date: 20200204
  Receipt Date: 20200204
  Transmission Date: 20200409
  Serious: Yes (Hospitalization)
  Sender: FDA-Public Use
  Company Number: US-PROCTER+GAMBLE-GS20005655

PATIENT

DRUGS (2)
  1. BLOOD PRESSURE MEDICINE [Suspect]
     Active Substance: UNSPECIFIED INGREDIENT
  2. VICKS SINEX SEVERE ORIGINAL [Suspect]
     Active Substance: OXYMETAZOLINE HYDROCHLORIDE
     Route: 045

REACTIONS (2)
  - Drug interaction [Unknown]
  - Blood pressure increased [Unknown]
